FAERS Safety Report 4392034-0 (Version None)
Quarter: 2004Q3

REPORT INFORMATION
  Report Type: 
  Country: None (occurrence: None)
  Receive Date: 20040708
  Receipt Date: 20040623
  Transmission Date: 20050211
  Serious: Yes (Hospitalization)
  Sender: FDA-Public Use
  Company Number: PHEH2004US06835

PATIENT
  Age: 52 Year
  Sex: Male

DRUGS (7)
  1. GLEEVEC [Suspect]
     Indication: CHRONIC MYELOID LEUKAEMIA
     Dosage: 300 MG, QD
     Route: 048
     Dates: start: 20040401
  2. LOPID [Concomitant]
     Indication: BLOOD CHOLESTEROL INCREASED
     Route: 048
  3. IMODIUM ^JANSSEN^ [Concomitant]
     Indication: DIARRHOEA
     Route: 048
  4. VANCOMYCIN [Concomitant]
     Indication: PYREXIA
     Route: 042
  5. NEURONTIN [Concomitant]
  6. IRON [Concomitant]
  7. DIPHENHYDRAMINE [Concomitant]
     Route: 042

REACTIONS (4)
  - CHILLS [None]
  - LASER THERAPY [None]
  - NEPHROLITHIASIS [None]
  - PYREXIA [None]
